FAERS Safety Report 24580789 (Version 2)
Quarter: 2024Q4

REPORT INFORMATION
  Report Type: Spontaneous
  Country: US (occurrence: US)
  Receive Date: 20241105
  Receipt Date: 20241118
  Transmission Date: 20250114
  Serious: Yes (Hospitalization, Other)
  Sender: BRISTOL-MYERS SQUIBB COMPANY
  Company Number: US-BRISTOL-MYERS SQUIBB COMPANY-2024-167451

PATIENT
  Age: 67 Year
  Sex: Female
  Weight: 78.93 kg

DRUGS (9)
  1. REVLIMID [Suspect]
     Active Substance: LENALIDOMIDE
     Indication: Follicular lymphoma
     Dosage: FREQUENCY: TAKE 1 CAPSULE BY MOUTH DAILY FOR 21?DAYS ON AND THEN 7 DAYS OFF
     Route: 048
     Dates: start: 20241016
  2. REVLIMID [Suspect]
     Active Substance: LENALIDOMIDE
     Indication: Plasma cell myeloma
     Dosage: FREQUENCY: TAKE 1 CAPSULE BY MOUTH DAILY FOR 21?DAYS ON AND THEN 7 DAYS OFF
     Route: 048
     Dates: start: 20241017
  3. ACETAMINOPHEN [Concomitant]
     Active Substance: ACETAMINOPHEN
  4. ASPIRIN [Concomitant]
     Active Substance: ASPIRIN
     Dosage: (MCD)
  5. ATORVASTATIN CALCIUM [Concomitant]
     Active Substance: ATORVASTATIN CALCIUM
  6. CALCIUM CARBONATE [Concomitant]
     Active Substance: CALCIUM CARBONATE
  7. CHOLECALCIFEROL [Concomitant]
     Active Substance: CHOLECALCIFEROL
  8. CYCLOBENZAPRINE HYDROCHLORIDE [Concomitant]
     Active Substance: CYCLOBENZAPRINE HYDROCHLORIDE
  9. MACRODANTIN [Concomitant]
     Active Substance: NITROFURANTOIN

REACTIONS (14)
  - Syncope [Unknown]
  - Dizziness [Unknown]
  - Circulatory collapse [Unknown]
  - Gait inability [Unknown]
  - Headache [Unknown]
  - Aphasia [Unknown]
  - Sensory disturbance [Unknown]
  - Neck pain [Unknown]
  - Altered state of consciousness [Unknown]
  - Adverse drug reaction [Unknown]
  - Urine analysis abnormal [Unknown]
  - Hypoaesthesia [Unknown]
  - Pruritus [Unknown]
  - Paraesthesia [Unknown]

NARRATIVE: CASE EVENT DATE: 20241001
